FAERS Safety Report 6786612-9 (Version None)
Quarter: 2010Q2

REPORT INFORMATION
  Report Type: 
  Country: None (occurrence: None)
  Receive Date: 20100623
  Receipt Date: 20100615
  Transmission Date: 20101027
  Serious: Yes (Other)
  Sender: FDA-Public Use
  Company Number: US-AMGEN-QUU413593

PATIENT
  Age: 69 Year
  Sex: Male
  Weight: 86.3 kg

DRUGS (13)
  1. ENBREL [Suspect]
     Indication: PSORIASIS
     Route: 058
     Dates: start: 20040101
  2. DIOVAN [Concomitant]
  3. NIFEDIPINE [Concomitant]
  4. PLAQUENIL [Concomitant]
  5. VERAPAMIL [Concomitant]
  6. LOVASTATIN [Concomitant]
  7. SINGULAIR [Concomitant]
  8. ACTOS [Concomitant]
  9. AVODART [Concomitant]
  10. ADVAIR DISKUS 100/50 [Concomitant]
  11. FLUNISOLIDE [Concomitant]
  12. FLOMAX [Concomitant]
  13. GLYBURIDE [Concomitant]

REACTIONS (1)
  - PSEUDOLYMPHOMA [None]
